FAERS Safety Report 5058512-6 (Version None)
Quarter: 2006Q2

REPORT INFORMATION
  Report Type: 
  Country: None (occurrence: None)
  Receive Date: 20060627
  Receipt Date: 20050622
  Transmission Date: 20061013
  Serious: Yes (Death)
  Sender: FDA-Public Use
  Company Number: 408704

PATIENT
  Age: 49 Year
  Sex: Female
  Weight: 83.9 kg

DRUGS (1)
  1. XELODA [Suspect]
     Indication: PANCREATIC CARCINOMA
     Dosage: 1000 MG 2 PER DAY ORAL
     Route: 048
     Dates: start: 20050513, end: 20050523

REACTIONS (4)
  - JAUNDICE CHOLESTATIC [None]
  - NAUSEA [None]
  - PANCREATIC CARCINOMA [None]
  - VOMITING [None]
